FAERS Safety Report 25042258 (Version 1)
Quarter: 2025Q1

REPORT INFORMATION
  Report Type: Spontaneous
  Country: SK (occurrence: SK)
  Receive Date: 20250305
  Receipt Date: 20250305
  Transmission Date: 20250408
  Serious: Yes (Other)
  Sender: NOVARTIS
  Company Number: SK-002147023-NVSC2025SK034075

PATIENT
  Sex: Male

DRUGS (1)
  1. MAYZENT [Suspect]
     Active Substance: SIPONIMOD
     Indication: Secondary progressive multiple sclerosis
     Route: 048
     Dates: start: 202209, end: 202502

REACTIONS (4)
  - Acute coronary syndrome [Unknown]
  - Coronary artery stenosis [Unknown]
  - Bradycardia [Unknown]
  - Loss of consciousness [Unknown]
